FAERS Safety Report 7743549-6 (Version None)
Quarter: 2011Q3

REPORT INFORMATION
  Report Type: 
  Country: None (occurrence: None)
  Receive Date: 20110912
  Receipt Date: 20110822
  Transmission Date: 20111222
  Serious: No
  Sender: FDA-Public Use
  Company Number: US-ROXANE LABORATORIES, INC.-2011-RO-01108RO

PATIENT
  Sex: Female
  Weight: 67 kg

DRUGS (10)
  1. POTASSIUM CHLORIDE [Concomitant]
     Dosage: 10 MEQ
  2. LORAZEPAM [Concomitant]
     Indication: IRRITABLE BOWEL SYNDROME
     Dosage: 1 MG
  3. VITAMIN E [Concomitant]
  4. PULMICORT [Concomitant]
     Dosage: 200 MCG
  5. AMITRIPTYLINE HCL [Concomitant]
     Indication: NEUROPATHY PERIPHERAL
     Dosage: 0.25 MG
  6. FLUTICASONE PROPIONATE [Suspect]
     Indication: NASAL DISORDER
     Route: 045
     Dates: start: 20110329
  7. CORAL CALCIUM [Concomitant]
     Dosage: 500 MG
  8. AMLODIPINE [Concomitant]
     Dosage: 10 MG
  9. ACIDOPHILUS [Concomitant]
  10. DIOVAN [Concomitant]
     Indication: BLOOD PRESSURE

REACTIONS (2)
  - LIP SWELLING [None]
  - PRURITUS [None]
